FAERS Safety Report 18914118 (Version 1)
Quarter: 2021Q1

REPORT INFORMATION
  Report Type: Spontaneous
  Country: US (occurrence: US)
  Receive Date: 20210219
  Receipt Date: 20210219
  Transmission Date: 20210420
  Serious: Yes (Other)
  Sender: FDA-Public Use
  Company Number: US-GLAXOSMITHKLINE-US2021GSK047751

PATIENT
  Sex: Female

DRUGS (6)
  1. RANITIDINE CAPSULE [Suspect]
     Active Substance: RANITIDINE
     Indication: GASTRIC BYPASS
     Dosage: 150 MG, QD
     Route: 065
     Dates: start: 201408, end: 201510
  2. RANITIDINE. [Suspect]
     Active Substance: RANITIDINE
     Indication: GASTRIC BYPASS
     Dosage: 150 MG, QD
     Route: 065
     Dates: start: 201408, end: 201510
  3. ZANTAC [Suspect]
     Active Substance: RANITIDINE HYDROCHLORIDE
     Indication: GASTRIC BYPASS
     Dosage: 150 MG, QD
     Route: 065
     Dates: start: 201408, end: 201510
  4. ZANTAC [Suspect]
     Active Substance: RANITIDINE HYDROCHLORIDE
     Indication: GASTRIC BYPASS
     Dosage: 150 MG, QD
     Route: 065
     Dates: start: 201408, end: 201510
  5. RANITIDINE. [Suspect]
     Active Substance: RANITIDINE
     Indication: GASTRIC BYPASS
     Dosage: 150 MG, QD
     Route: 065
     Dates: start: 201408, end: 201510
  6. RANITIDINE. [Suspect]
     Active Substance: RANITIDINE
     Indication: GASTRIC BYPASS
     Dosage: 150 MG, QD
     Route: 065
     Dates: start: 201408, end: 201510

REACTIONS (1)
  - Renal cancer [Unknown]
